FAERS Safety Report 11878303 (Version 4)
Quarter: 2018Q1

REPORT INFORMATION
  Report Type: Spontaneous
  Country: US (occurrence: US)
  Receive Date: 20151230
  Receipt Date: 20180316
  Transmission Date: 20180508
  Serious: Yes (Death, Hospitalization)
  Sender: FDA-Public Use
  Company Number: US-ENDO PHARMACEUTICALS INC.-2015-005188

PATIENT
  Age: 60 Year
  Sex: Male
  Weight: 102.4 kg

DRUGS (5)
  1. PREDNISONE TABLETS [Concomitant]
     Active Substance: PREDNISONE
     Route: 065
     Dates: end: 201309
  2. FORTESTA [Suspect]
     Active Substance: TESTOSTERONE
     Indication: ANDROGEN REPLACEMENT THERAPY
     Dosage: UNK UNKNOWN, UNKNOWN
     Route: 061
     Dates: start: 20130812, end: 20130816
  3. PREDNISONE TABLETS [Concomitant]
     Active Substance: PREDNISONE
     Indication: PRODUCT USED FOR UNKNOWN INDICATION
     Dosage: UNK UNKNOWN, UNKNOWN
     Route: 065
     Dates: start: 201309
  4. TESTOSTERONE. [Suspect]
     Active Substance: TESTOSTERONE
     Indication: ANDROGEN REPLACEMENT THERAPY
     Dosage: 200 MG, UNKNOWN
     Route: 030
     Dates: start: 20120322
  5. TESTOPEL [Suspect]
     Active Substance: TESTOSTERONE
     Indication: ANDROGEN REPLACEMENT THERAPY
     Dosage: UNK UNKNOWN, UNKNOWN
     Route: 058
     Dates: start: 20120518, end: 20120915

REACTIONS (4)
  - Arteriosclerosis [Fatal]
  - Transient ischaemic attack [Unknown]
  - Hypertensive heart disease [Fatal]
  - Acute respiratory failure [Unknown]

NARRATIVE: CASE EVENT DATE: 20120919
